FAERS Safety Report 6015720-5 (Version None)
Quarter: 2008Q4

REPORT INFORMATION
  Report Type: 
  Country: None (occurrence: None)
  Receive Date: 20081219
  Receipt Date: 20081219
  Transmission Date: 20090506
  Serious: Yes (Other)
  Sender: FDA-Public Use
  Company Number: None

PATIENT
  Sex: Male
  Weight: 90.7194 kg

DRUGS (2)
  1. SEROQUEL [Suspect]
     Indication: SCHIZOPHRENIA, PARANOID TYPE
     Dosage: 200 MG'S DAILY PO SEVERAL MONTHS
     Route: 048
  2. SEROQUEL [Suspect]
     Indication: SCHIZOPHRENIA, PARANOID TYPE
     Dosage: 300 MG'S DAILY PO SEVERAL MONTHS
     Route: 048

REACTIONS (17)
  - ABDOMINAL PAIN UPPER [None]
  - AGGRESSION [None]
  - AGITATION [None]
  - ASTHENIA [None]
  - BALANCE DISORDER [None]
  - CONFUSIONAL STATE [None]
  - CONSTIPATION [None]
  - DRY MOUTH [None]
  - HOSTILITY [None]
  - IMPULSIVE BEHAVIOUR [None]
  - IRRITABILITY [None]
  - MEMORY IMPAIRMENT [None]
  - NAUSEA [None]
  - PRESYNCOPE [None]
  - SOMNOLENCE [None]
  - SPEECH DISORDER [None]
  - WEIGHT INCREASED [None]
